FAERS Safety Report 8041141-X (Version None)
Quarter: 2012Q1

REPORT INFORMATION
  Report Type: 
  Country: None (occurrence: None)
  Receive Date: 20120112
  Receipt Date: 20110816
  Transmission Date: 20120608
  Serious: No
  Sender: FDA-Public Use
  Company Number: IN-JNJFOC-20120103686

PATIENT
  Sex: Female

DRUGS (1)
  1. DURAGESIC-100 [Suspect]
     Indication: PRODUCT USED FOR UNKNOWN INDICATION
     Route: 062

REACTIONS (9)
  - WEIGHT DECREASED [None]
  - OEDEMA PERIPHERAL [None]
  - ASTHENIA [None]
  - BURNING SENSATION [None]
  - SKIN IRRITATION [None]
  - DEVICE FAILURE [None]
  - DRUG DISPENSING ERROR [None]
  - RASH [None]
  - PAIN [None]
